FAERS Safety Report 6735357-X (Version None)
Quarter: 2010Q2

REPORT INFORMATION
  Report Type: 
  Country: None (occurrence: None)
  Receive Date: 20100521
  Receipt Date: 20100512
  Transmission Date: 20101027
  Serious: Yes (Other)
  Sender: FDA-Public Use
  Company Number: FR-TEVA-233830ISR

PATIENT
  Age: 70 Year
  Sex: Male

DRUGS (3)
  1. AZILECT [Suspect]
     Indication: PARKINSON'S DISEASE
     Route: 048
     Dates: start: 20100101, end: 20100426
  2. STALEVO 100 [Suspect]
     Indication: PARKINSON'S DISEASE
     Dates: start: 20100428, end: 20100502
  3. MADOPAR [Concomitant]
     Indication: PARKINSON'S DISEASE

REACTIONS (7)
  - CUTANEOUS VASCULITIS [None]
  - CYTOLYTIC HEPATITIS [None]
  - ERYTHEMA [None]
  - HEADACHE [None]
  - INFLAMMATION [None]
  - PROTEINURIA [None]
  - PYREXIA [None]
